FAERS Safety Report 21419821 (Version 1)
Quarter: 2022Q4

REPORT INFORMATION
  Report Type: Spontaneous
  Country: US (occurrence: None)
  Receive Date: 20221005
  Receipt Date: 20221005
  Transmission Date: 20230112
  Serious: No
  Sender: FDA-Public Use
  Company Number: None

PATIENT
  Age: 53 Year
  Sex: Female

DRUGS (1)
  1. TALTZ [Suspect]
     Active Substance: IXEKIZUMAB
     Indication: Psoriasis
     Dosage: OTHER FREQUENCY : WEEK 12;?INJECT SOMG (1 PEN) SUBCUTANEOUSLY AT WEEK 12 AS?DIRECTED.?
     Route: 058
     Dates: start: 202206

REACTIONS (2)
  - Abdominal pain upper [None]
  - Product use issue [None]
